FAERS Safety Report 4832536-3 (Version None)
Quarter: 2005Q4

REPORT INFORMATION
  Report Type: 
  Country: None (occurrence: None)
  Receive Date: 20051115
  Receipt Date: 20051104
  Transmission Date: 20060501
  Serious: Yes (Death, Life-Threatening, Hospitalization)
  Sender: FDA-Public Use
  Company Number: 200514457BCC

PATIENT
  Sex: Female

DRUGS (2)
  1. ASPIRIN [Suspect]
     Indication: ARTHRALGIA
     Dosage: ORAL
     Route: 048
     Dates: start: 20050101
  2. INDOMETHACIN [Suspect]

REACTIONS (2)
  - GASTROINTESTINAL HAEMORRHAGE [None]
  - STAPHYLOCOCCAL INFECTION [None]
